FAERS Safety Report 10954276 (Version 2)
Quarter: 2015Q2

REPORT INFORMATION
  Report Type: Report from Study
  Country: JP (occurrence: JP)
  Receive Date: 20150325
  Receipt Date: 20150421
  Transmission Date: 20150821
  Serious: Yes (Life-Threatening, Hospitalization, Disabling, Other)
  Sender: FDA-Public Use
  Company Number: JP-PFIZER INC-2015101277

PATIENT
  Age: 84 Year
  Sex: Male
  Weight: 50 kg

DRUGS (3)
  1. ALESION [Concomitant]
     Active Substance: EPINASTINE HYDROCHLORIDE
     Indication: RHINITIS ALLERGIC
     Dosage: UNK
     Route: 048
     Dates: start: 20140902
  2. FESOTERODINE [Suspect]
     Active Substance: FESOTERODINE
     Indication: HYPERTONIC BLADDER
     Dosage: 4 MG, 1X/DAY
     Route: 048
     Dates: start: 20140930, end: 20141027
  3. HANGE-KOBOKU-TO [Concomitant]
     Indication: LARYNGEAL DISCOMFORT
     Dosage: UNK
     Route: 048
     Dates: start: 20140902, end: 20140915

REACTIONS (1)
  - Ureteric stenosis [Not Recovered/Not Resolved]

NARRATIVE: CASE EVENT DATE: 20141027
